FAERS Safety Report 5541739-4 (Version None)
Quarter: 2007Q4

REPORT INFORMATION
  Report Type: 
  Country: None (occurrence: None)
  Receive Date: 20071210
  Receipt Date: 20071130
  Transmission Date: 20080405
  Serious: Yes (Hospitalization)
  Sender: FDA-Public Use
  Company Number: US-KINGPHARMUSA00001-K200700074

PATIENT

DRUGS (19)
  1. ALTACE [Suspect]
     Indication: HYPERTENSION
     Dosage: 2 TABLETS, QD
     Route: 048
     Dates: start: 20061128, end: 20061208
  2. SECTRAL [Suspect]
     Dosage: 200 MG, QD
     Route: 048
     Dates: start: 20061127, end: 20061208
  3. KARDEGIC                           /00002703/ [Suspect]
     Dosage: 75 MG, QD
     Route: 048
     Dates: start: 20061127, end: 20061208
  4. FUMAFER [Suspect]
     Route: 048
     Dates: start: 20061124, end: 20061208
  5. AMLOR [Suspect]
     Dosage: 5 MG, QD
     Route: 048
     Dates: start: 20061128, end: 20061208
  6. CATAPRESSAN                        /00171101/ [Concomitant]
  7. FUROSEMIDE [Concomitant]
     Dosage: UNK, UNK
     Route: 048
  8. METFORMIN HCL [Concomitant]
     Route: 048
  9. TAHOR [Concomitant]
     Route: 048
  10. DIFFU K [Concomitant]
     Route: 048
  11. FUCIDINE                           /00065701/ [Concomitant]
  12. LEXOMIL [Concomitant]
     Route: 048
  13. PROPOFAN                           /00765201/ [Concomitant]
     Route: 048
  14. EUPRESSYL                          /00631801/ [Concomitant]
  15. ATARAX                             /00058401/ [Concomitant]
  16. KAYEXALATE [Concomitant]
  17. MOVICOL                            /01053601/ [Concomitant]
  18. DAFALGAN                           /00020001/ [Concomitant]
  19. LANTUS [Concomitant]

REACTIONS (7)
  - ACNE [None]
  - BACK PAIN [None]
  - GENERAL PHYSICAL HEALTH DETERIORATION [None]
  - PRURITUS [None]
  - RASH MACULO-PAPULAR [None]
  - RENAL FAILURE ACUTE [None]
  - SKIN EXFOLIATION [None]
